FAERS Safety Report 5363488-8 (Version None)
Quarter: 2007Q2

REPORT INFORMATION
  Report Type: 
  Country: None (occurrence: None)
  Receive Date: 20070620
  Receipt Date: 20070613
  Transmission Date: 20071010
  Serious: Yes (Other)
  Sender: FDA-Public Use
  Company Number: PR-ROCHE-470129

PATIENT
  Age: 41 Year
  Sex: Male
  Weight: 71.2 kg

DRUGS (11)
  1. PEG-INTERFERON ALFA 2A (RO 25-8310) [Suspect]
     Dosage: FORM REPORTED AS VIAL.
     Route: 058
     Dates: start: 20060815, end: 20061106
  2. PEG-INTERFERON ALFA 2A (RO 25-8310) [Suspect]
     Dosage: LAST DOSE PRIOR TO SAE WAS REPORTED AS 06 MARCH 2007.  THE DRUG WAS REPORTED AS PERMANENTLY DISCONT+
     Route: 058
     Dates: end: 20070313
  3. RIBAVIRIN [Suspect]
     Dosage: FREQUENCY REPORTED AS DAILY.
     Route: 048
     Dates: start: 20060815, end: 20061106
  4. RIBAVIRIN [Suspect]
     Dosage: DATE OF LAST DOSE PRIOR TO SAE WAS REPORTED AS 12 MARCH 2007.  IT WAS REPORTED THAT THERAPY WAS PER+
     Route: 048
     Dates: end: 20070313
  5. METOPROLOL SUCCINATE [Concomitant]
     Dates: start: 20060701
  6. HEMATRON [Concomitant]
     Dates: start: 20060923
  7. NEXIUM [Concomitant]
     Dates: start: 20060926
  8. PROCRIT [Concomitant]
     Dosage: DOSE REPORTED AS 40000 (UNITS NOT PROVIDED)
     Dates: start: 20061009, end: 20061030
  9. SUSTIVA [Concomitant]
     Dates: start: 20010101
  10. COMBIVIR [Concomitant]
     Dates: start: 20010101
  11. ACETAMINOPHEN [Concomitant]
     Dates: start: 20060905

REACTIONS (1)
  - RETINAL DETACHMENT [None]
